FAERS Safety Report 12431814 (Version 1)
Quarter: 2016Q2

REPORT INFORMATION
  Report Type: Spontaneous
  Country: US (occurrence: None)
  Receive Date: 20160602
  Receipt Date: 20160602
  Transmission Date: 20160815
  Serious: Yes (Disabling)
  Sender: FDA-Public Use
  Company Number: None

PATIENT
  Age: 61 Year
  Sex: Female
  Weight: 63.5 kg

DRUGS (4)
  1. ALBUTEROL. [Concomitant]
     Active Substance: ALBUTEROL
  2. VITAMIN C [Concomitant]
     Active Substance: ASCORBIC ACID
  3. VITAMIN D3 [Concomitant]
     Active Substance: CHOLECALCIFEROL
  4. CIPRO [Suspect]
     Active Substance: CIPROFLOXACIN HYDROCHLORIDE
     Route: 048

REACTIONS (10)
  - Plantar fasciitis [None]
  - Confusional state [None]
  - Neuropathy peripheral [None]
  - Pain [None]
  - Tendonitis [None]
  - Muscle atrophy [None]
  - Tendon disorder [None]
  - Asthenia [None]
  - Malaise [None]
  - Ligament disorder [None]

NARRATIVE: CASE EVENT DATE: 20160601
